FAERS Safety Report 26059475 (Version 1)
Quarter: 2025Q4

REPORT INFORMATION
  Report Type: Spontaneous
  Country: IN (occurrence: IN)
  Receive Date: 20251118
  Receipt Date: 20251118
  Transmission Date: 20260117
  Serious: Yes (Other)
  Sender: FERRING
  Company Number: IN-FERRINGPH-2025FE06757

PATIENT

DRUGS (1)
  1. DINOPROSTONE [Suspect]
     Active Substance: DINOPROSTONE
     Indication: Labour induction
     Dosage: 10 MG, ONCE/SINGLE
     Route: 067
     Dates: start: 20250924, end: 20250924

REACTIONS (5)
  - Vomiting [Unknown]
  - Pyrexia [Unknown]
  - Chills [Unknown]
  - Failure to suspend medication [Unknown]
  - Contraindicated product administered [Unknown]

NARRATIVE: CASE EVENT DATE: 20250924
